FAERS Safety Report 8939864 (Version 2)
Quarter: 2012Q4

REPORT INFORMATION
  Report Type: 
  Country: US (occurrence: US)
  Receive Date: 20121130
  Receipt Date: 20121207
  Transmission Date: 20130627
  Serious: No
  Sender: FDA-Public Use
  Company Number: US-009507513-1211USA010893

PATIENT
  Age: 72 Year
  Sex: Female
  Weight: 78.5 kg

DRUGS (8)
  1. CLARITIN [Suspect]
     Indication: HYPERSENSITIVITY
     Dosage: UNK
     Route: 048
  2. CLARITIN [Suspect]
     Indication: LACRIMATION INCREASED
  3. CLARITIN [Suspect]
     Indication: MIGRAINE
  4. CLARITIN [Suspect]
     Indication: SNEEZING
  5. FLONASE [Concomitant]
     Indication: HYPERSENSITIVITY
     Dosage: UNK
  6. ALLERGENIC EXTRACT [Concomitant]
     Indication: HYPERSENSITIVITY
  7. FLOVENT [Concomitant]
     Indication: HYPERSENSITIVITY
  8. CENTRUM SILVER [Concomitant]
     Indication: HYPERSENSITIVITY

REACTIONS (7)
  - Heart rate irregular [Not Recovered/Not Resolved]
  - Palpitations [Recovered/Resolved]
  - Wheezing [Unknown]
  - Drug hypersensitivity [Unknown]
  - Visual impairment [Unknown]
  - Tremor [Unknown]
  - Palpitations [Recovered/Resolved]
